FAERS Safety Report 9200939 (Version 1)
Quarter: 2013Q2

REPORT INFORMATION
  Report Type: Spontaneous
  Country: US (occurrence: US)
  Receive Date: 20130401
  Receipt Date: 20130401
  Transmission Date: 20140414
  Serious: Yes (Death, Hospitalization)
  Sender: FDA-Public Use
  Company Number: US-JNJFOC-20130315593

PATIENT
  Age: 40 Year
  Sex: Male

DRUGS (1)
  1. REMICADE [Suspect]
     Indication: PRODUCT USED FOR UNKNOWN INDICATION
     Dosage: 3 YEARS
     Route: 042

REACTIONS (5)
  - Mental impairment [Unknown]
  - Infection [Fatal]
  - Sepsis [Fatal]
  - Hepatic failure [Unknown]
  - Skin infection [Not Recovered/Not Resolved]
